FAERS Safety Report 12091751 (Version 2)
Quarter: 2016Q1

REPORT INFORMATION
  Report Type: Spontaneous
  Country: CH (occurrence: CH)
  Receive Date: 20160218
  Receipt Date: 20160225
  Transmission Date: 20160526
  Serious: Yes (Death, Hospitalization, Other)
  Sender: FDA-Public Use
  Company Number: CH-GILEAD-2016-0198754

PATIENT
  Age: 75 Year
  Sex: Female
  Weight: 48 kg

DRUGS (2)
  1. ZYDELIG [Suspect]
     Active Substance: IDELALISIB
     Indication: CHRONIC LYMPHOCYTIC LEUKAEMIA
     Dosage: 150 MG, BID
     Route: 048
     Dates: start: 20150428, end: 20151202
  2. ZYDELIG [Suspect]
     Active Substance: IDELALISIB
     Indication: COMPOSITE LYMPHOMA

REACTIONS (2)
  - Septic shock [Fatal]
  - Disease progression [Unknown]

NARRATIVE: CASE EVENT DATE: 20151203
